FAERS Safety Report 14858925 (Version 1)
Quarter: 2018Q2

REPORT INFORMATION
  Report Type: Report from Study
  Country: TW (occurrence: TW)
  Receive Date: 20180508
  Receipt Date: 20180508
  Transmission Date: 20180711
  Serious: Yes (Other)
  Sender: FDA-Public Use
  Company Number: TW-ASTELLAS-2018US021314

PATIENT
  Age: 22 Year
  Sex: Female
  Weight: 51 kg

DRUGS (10)
  1. TACROLIMUS. [Suspect]
     Active Substance: TACROLIMUS
     Indication: IMMUNOSUPPRESSANT DRUG THERAPY
     Route: 065
     Dates: start: 20071226
  2. TACROLIMUS. [Suspect]
     Active Substance: TACROLIMUS
     Dosage: 12 MG, DAILY DOSE UNKNOWN FREQ.
     Route: 065
     Dates: start: 20080111, end: 20080226
  3. SOLU-MEDROL [Suspect]
     Active Substance: METHYLPREDNISOLONE SODIUM SUCCINATE
     Indication: IMMUNOSUPPRESSANT DRUG THERAPY
     Route: 065
     Dates: start: 20071226
  4. CELLCEPT [Suspect]
     Active Substance: MYCOPHENOLATE MOFETIL\MYCOPHENOLATE MOFETIL HYDROCHLORIDE
     Indication: IMMUNOSUPPRESSANT DRUG THERAPY
     Dosage: 2000 MG/ DAY, UNKNOWN FREQ.
     Route: 065
     Dates: start: 20071228
  5. TACROLIMUS. [Suspect]
     Active Substance: TACROLIMUS
     Indication: IMMUNOSUPPRESSANT DRUG THERAPY
     Dosage: 9 MG, DAILY DOSE UNKNOWN FREQ.
     Route: 065
     Dates: start: 20071228, end: 20080107
  6. TACROLIMUS. [Suspect]
     Active Substance: TACROLIMUS
     Dosage: 9 MG, DAILY DOSE UNKNOWN FREQ.
     Route: 065
     Dates: start: 20080326, end: 20080526
  7. ZENAPAX [Suspect]
     Active Substance: DACLIZUMAB
     Indication: IMMUNOSUPPRESSANT DRUG THERAPY
     Route: 065
     Dates: start: 20071226, end: 20080110
  8. TACROLIMUS. [Suspect]
     Active Substance: TACROLIMUS
     Dosage: 10 MG, (DAILY DOSE) UNKNOWN FREQ.
     Route: 065
     Dates: start: 20080108, end: 20080110
  9. TACROLIMUS. [Suspect]
     Active Substance: TACROLIMUS
     Dosage: 11 MG, DAILY DOSE UNKNOWN FREQ.
     Route: 065
     Dates: start: 20080227, end: 20080325
  10. TACROLIMUS. [Suspect]
     Active Substance: TACROLIMUS
     Dosage: 8 MG, DAILY DOSE UNKNOWN FREQ.
     Route: 065
     Dates: start: 20080527

REACTIONS (7)
  - Vomiting [Unknown]
  - Pyrexia [Unknown]
  - Kidney fibrosis [Unknown]
  - Renal tubular atrophy [Unknown]
  - Transplant rejection [Unknown]
  - Diarrhoea [Unknown]
  - Renal tubular disorder [Unknown]

NARRATIVE: CASE EVENT DATE: 20100729
